FAERS Safety Report 13290023 (Version 1)
Quarter: 2017Q1

REPORT INFORMATION
  Report Type: Report from Study
  Country: DE (occurrence: DE)
  Receive Date: 20170303
  Receipt Date: 20170303
  Transmission Date: 20170428
  Serious: Yes (Hospitalization)
  Sender: FDA-Public Use
  Company Number: DE-ROCHE-1705819

PATIENT
  Age: 80 Year
  Sex: Male

DRUGS (2)
  1. TOCILIZUMAB [Suspect]
     Active Substance: TOCILIZUMAB
     Indication: RHEUMATOID ARTHRITIS
     Route: 058
     Dates: end: 20160102
  2. TOCILIZUMAB [Suspect]
     Active Substance: TOCILIZUMAB
     Route: 058
     Dates: start: 20160303

REACTIONS (3)
  - Fistula [Not Recovered/Not Resolved]
  - Fistula [Not Recovered/Not Resolved]
  - Actinic keratosis [Recovered/Resolved]

NARRATIVE: CASE EVENT DATE: 20161112
